FAERS Safety Report 9282115 (Version 1)
Quarter: 2013Q2

REPORT INFORMATION
  Report Type: Spontaneous
  Country: IE (occurrence: IE)
  Receive Date: 20130510
  Receipt Date: 20130510
  Transmission Date: 20140414
  Serious: Yes (Other)
  Sender: FDA-Public Use
  Company Number: IE-ABBOTT-13X-229-1084417-00

PATIENT
  Age: 68 Year
  Sex: Female

DRUGS (7)
  1. LIPANTIL [Suspect]
     Indication: MYOCARDIAL ISCHAEMIA
     Route: 048
  2. LIPANTIL [Suspect]
  3. ATORVASTATIN [Concomitant]
     Indication: MYOCARDIAL ISCHAEMIA
     Route: 048
  4. EZETROL [Concomitant]
     Indication: MYOCARDIAL ISCHAEMIA
     Route: 048
  5. BISOPROLOL [Concomitant]
     Indication: MYOCARDIAL ISCHAEMIA
     Route: 048
  6. ASPIRIN [Concomitant]
     Indication: MYOCARDIAL ISCHAEMIA
     Route: 048
  7. MESALAZINE [Concomitant]
     Indication: COLITIS
     Route: 048

REACTIONS (1)
  - Psoriasis [Recovered/Resolved]
